FAERS Safety Report 15343262 (Version 1)
Quarter: 2018Q3

REPORT INFORMATION
  Report Type: Spontaneous
  Country: US (occurrence: US)
  Receive Date: 20180903
  Receipt Date: 20180903
  Transmission Date: 20181010
  Serious: Yes (Hospitalization, Other)
  Sender: FDA-Public Use
  Company Number: US-AUROBINDO-AUR-APL-2018-043029

PATIENT

DRUGS (14)
  1. DULOXETINE. [Interacting]
     Active Substance: DULOXETINE
     Dosage: EVERY MORNING
     Route: 048
  2. DIAZEPAM. [Concomitant]
     Active Substance: DIAZEPAM
     Route: 048
  3. TIZANIDINE HYDROCHLORIDE. [Concomitant]
     Active Substance: TIZANIDINE HYDROCHLORIDE
     Route: 048
  4. DULOXETINE. [Interacting]
     Active Substance: DULOXETINE
     Dosage: EVERY MORNING
     Route: 048
  5. PARACETAMOL [Concomitant]
     Active Substance: ACETAMINOPHEN
     Indication: PAIN
     Dosage: AS NEEDED
     Route: 048
  6. DULOXETINE. [Suspect]
     Active Substance: DULOXETINE
     Indication: NEURALGIA
     Dosage: EVERY MORNING
     Route: 048
  7. AMITRIPTYLINE [Interacting]
     Active Substance: AMITRIPTYLINE
     Dosage: EVERY EVENING
     Route: 048
     Dates: start: 20160520
  8. NYSTATIN. [Concomitant]
     Active Substance: NYSTATIN
     Indication: RASH
     Dosage: UP TO 3 TIMES A DAY AS  NEEDED (100000[IU]/G) ; AS NECESSARY
     Route: 061
  9. HYDRALAZINE [Concomitant]
     Active Substance: HYDRALAZINE HYDROCHLORIDE
     Indication: HYPERTENSION
     Dosage: ()
     Route: 048
  10. DULOXETINE. [Interacting]
     Active Substance: DULOXETINE
     Dosage: EVERY MORNING
     Route: 048
     Dates: end: 20160613
  11. AMITRIPTYLINE [Interacting]
     Active Substance: AMITRIPTYLINE
     Indication: NEURALGIA
     Dosage: EVERY EVENING
     Route: 048
  12. DOCUSATE [Concomitant]
     Active Substance: DOCUSATE
     Dosage: ()
     Route: 054
  13. GLYCERYL TRINITRATE [Concomitant]
     Active Substance: NITROGLYCERIN
     Indication: HYPERTENSION
     Dosage: ()
     Route: 062
  14. GLATIRAMER ACETATE. [Concomitant]
     Active Substance: GLATIRAMER ACETATE
     Dosage: 3 TIMES PER WEEK
     Route: 058

REACTIONS (2)
  - Autonomic dysreflexia [Recovered/Resolved]
  - Drug interaction [Recovered/Resolved]
